FAERS Safety Report 9454268 (Version 1)
Quarter: 2013Q3

REPORT INFORMATION
  Report Type: Spontaneous
  Country: US (occurrence: None)
  Receive Date: 20130807
  Receipt Date: 20130807
  Transmission Date: 20140515
  Serious: Yes (Other)
  Sender: FDA-Public Use
  Company Number: AUR-APL-2013-06490

PATIENT
  Age: 49 Year
  Sex: Male
  Weight: 136 kg

DRUGS (4)
  1. METOPROLOL (METOPROLOL) [Suspect]
     Indication: HYPERTENSION
     Dosage: 1 D
  2. ATIVAN (LORAZEPAM) [Suspect]
     Indication: ANXIETY
  3. EFFEXOR (VENLAFAXINE HYDROCHLORIDE) UNKNOWN [Suspect]
     Indication: DEPRESSION
     Dates: start: 201202, end: 201206
  4. PREDNISONE (PREDNISONE) [Suspect]
     Indication: OROPHARYNGEAL PAIN

REACTIONS (6)
  - Aggression [None]
  - Imprisonment [None]
  - Insomnia [None]
  - Abnormal dreams [None]
  - Emotional disorder [None]
  - Mania [None]
